FAERS Safety Report 9647654 (Version 7)
Quarter: 2014Q4

REPORT INFORMATION
  Report Type: Report from Study
  Country: CA (occurrence: CA)
  Receive Date: 20131028
  Receipt Date: 20141202
  Transmission Date: 20150529
  Serious: Yes (Other)
  Sender: FDA-Public Use
  Company Number: CA-ROCHE-1033559

PATIENT
  Age: 50 Year
  Sex: Male
  Weight: 129.3 kg

DRUGS (20)
  1. CESAMET [Concomitant]
     Active Substance: NABILONE
     Dosage: AS REQUIRED
     Route: 065
  2. ALENDRONATE [Concomitant]
     Active Substance: ALENDRONATE SODIUM
  3. PREDNISONE. [Concomitant]
     Active Substance: PREDNISONE
  4. RITUXAN [Suspect]
     Active Substance: RITUXIMAB
     Indication: SYSTEMIC LUPUS ERYTHEMATOSUS
  5. TESTOSTERONE. [Concomitant]
     Active Substance: TESTOSTERONE
  6. WARFARIN [Suspect]
     Active Substance: WARFARIN
     Indication: PRODUCT USED FOR UNKNOWN INDICATION
     Route: 065
  7. APO-HYDROXYQUINE [Concomitant]
  8. ACETAMINOPHEN. [Concomitant]
     Active Substance: ACETAMINOPHEN
     Route: 048
     Dates: start: 20120730, end: 20120730
  9. RITUXAN [Suspect]
     Active Substance: RITUXIMAB
     Indication: MYELITIS TRANSVERSE
  10. CELLCEPT [Suspect]
     Active Substance: MYCOPHENOLATE MOFETIL\MYCOPHENOLATE MOFETIL HYDROCHLORIDE
     Indication: PRODUCT USED FOR UNKNOWN INDICATION
     Route: 065
  11. RITUXAN [Suspect]
     Active Substance: RITUXIMAB
     Indication: NEUROMYELITIS OPTICA
     Route: 042
     Dates: start: 20100304
  12. GABAPENTIN. [Concomitant]
     Active Substance: GABAPENTIN
  13. CELEBREX [Concomitant]
     Active Substance: CELECOXIB
     Dosage: AS REQUIRED
     Route: 065
  14. DIPHENHYDRAMINE HCL [Concomitant]
     Active Substance: DIPHENHYDRAMINE HYDROCHLORIDE
     Route: 048
     Dates: start: 20100304
  15. OXYCONTIN [Concomitant]
     Active Substance: OXYCODONE HYDROCHLORIDE
  16. PERCOCET [Concomitant]
     Active Substance: ACETAMINOPHEN\OXYCODONE HYDROCHLORIDE
  17. METHYLPREDNISOLONE. [Concomitant]
     Active Substance: METHYLPREDNISOLONE
     Indication: PREMEDICATION
     Route: 042
     Dates: start: 20100304
  18. RITUXAN [Suspect]
     Active Substance: RITUXIMAB
     Indication: RHEUMATOID ARTHRITIS
  19. DIPHENHYDRAMINE HCL [Concomitant]
     Active Substance: DIPHENHYDRAMINE HYDROCHLORIDE
     Route: 048
     Dates: start: 20120730, end: 20120730
  20. ACETAMINOPHEN. [Concomitant]
     Active Substance: ACETAMINOPHEN
     Route: 048
     Dates: start: 20100304

REACTIONS (17)
  - Fungal infection [Unknown]
  - Thermal burn [Recovered/Resolved]
  - Road traffic accident [Unknown]
  - Dry mouth [Not Recovered/Not Resolved]
  - Arthralgia [Recovering/Resolving]
  - International normalised ratio increased [Recovered/Resolved]
  - Urinary incontinence [Recovering/Resolving]
  - Liver function test abnormal [Not Recovered/Not Resolved]
  - Fatigue [Recovering/Resolving]
  - Tooth abscess [Recovered/Resolved]
  - Hypoaesthesia [Not Recovered/Not Resolved]
  - Gastrointestinal infection [Unknown]
  - Nasopharyngitis [Recovering/Resolving]
  - Somnolence [Unknown]
  - Somnolence [Unknown]
  - Blood urine present [Unknown]
  - Off label use [Unknown]

NARRATIVE: CASE EVENT DATE: 201201
